FAERS Safety Report 9117893 (Version 1)
Quarter: 2013Q1

REPORT INFORMATION
  Report Type: Report from Study
  Country: MX (occurrence: MX)
  Receive Date: 20130225
  Receipt Date: 20130225
  Transmission Date: 20140127
  Serious: Yes (Death, Hospitalization)
  Sender: FDA-Public Use
  Company Number: MX-BRISTOL-MYERS SQUIBB COMPANY-15635808

PATIENT
  Age: 71 Year
  Sex: Male

DRUGS (5)
  1. IPILIMUMAB [Suspect]
     Indication: PROSTATE CANCER
     Dosage: 20JAN2011-01MAR2011; 130 ML TOTAL DOSE
     Route: 042
     Dates: start: 20101229, end: 20110301
  2. BUPRENORPHINE [Concomitant]
     Dates: start: 20110301
  3. OMEPRAZOLE [Concomitant]
     Dates: start: 20100920
  4. PREDNISONE [Concomitant]
     Dates: start: 20110212, end: 20110323
  5. HYDROCORTISONE [Concomitant]
     Dates: start: 20110425

REACTIONS (5)
  - Septic shock [Fatal]
  - Pneumonia [Fatal]
  - Renal failure acute [Not Recovered/Not Resolved]
  - Diarrhoea [Recovered/Resolved]
  - Dehydration [Unknown]
